FAERS Safety Report 9134066 (Version 2)
Quarter: 2013Q1

REPORT INFORMATION
  Report Type: Spontaneous
  Country: US (occurrence: US)
  Receive Date: 20130304
  Receipt Date: 20130322
  Transmission Date: 20140127
  Serious: Yes (Other)
  Sender: FDA-Public Use
  Company Number: US-BIOGENIDEC-2013BI019310

PATIENT
  Age: 66 None
  Sex: Female

DRUGS (3)
  1. AVONEX [Suspect]
     Indication: MULTIPLE SCLEROSIS
     Route: 030
     Dates: start: 20090114, end: 20090531
  2. AVONEX [Suspect]
     Indication: MULTIPLE SCLEROSIS
     Route: 030
     Dates: start: 20090701
  3. AVONEX [Suspect]
     Indication: MULTIPLE SCLEROSIS
     Route: 030
     Dates: start: 20090731

REACTIONS (12)
  - Bladder cancer [Not Recovered/Not Resolved]
  - Catheterisation cardiac [Recovered/Resolved]
  - Nasopharyngitis [Not Recovered/Not Resolved]
  - Cognitive disorder [Recovered/Resolved with Sequelae]
  - Wrist fracture [Recovered/Resolved with Sequelae]
  - Tendon rupture [Recovered/Resolved with Sequelae]
  - Constipation [Recovered/Resolved]
  - Road traffic accident [Recovered/Resolved with Sequelae]
  - Memory impairment [Unknown]
  - Muscular weakness [Recovered/Resolved with Sequelae]
  - Malaise [Recovered/Resolved]
  - Emotional disorder [Recovered/Resolved with Sequelae]
